FAERS Safety Report 24793008 (Version 1)
Quarter: 2024Q4

REPORT INFORMATION
  Report Type: Spontaneous
  Country: US (occurrence: None)
  Receive Date: 20241230
  Receipt Date: 20241230
  Transmission Date: 20250115
  Serious: Yes (Hospitalization, Other)
  Sender: Public
  Company Number: None

PATIENT
  Age: 80 Year
  Sex: Female

DRUGS (1)
  1. LENALIDOMIDE [Suspect]
     Active Substance: LENALIDOMIDE
     Indication: Plasma cell myeloma
     Dosage: FREQUENCY : DAILY;?
     Route: 048
     Dates: start: 20210607

REACTIONS (5)
  - Dyspnoea [None]
  - Influenza [None]
  - Atrial fibrillation [None]
  - Hypokalaemia [None]
  - Therapy interrupted [None]

NARRATIVE: CASE EVENT DATE: 20241227
